FAERS Safety Report 8081477-X (Version None)
Quarter: 2012Q1

REPORT INFORMATION
  Report Type: 
  Country: None (occurrence: None)
  Receive Date: 20120130
  Receipt Date: 20120123
  Transmission Date: 20120608
  Serious: Yes (Hospitalization)
  Sender: FDA-Public Use
  Company Number: PHHY2012JP006620

PATIENT

DRUGS (1)
  1. CARBAMAZEPINE [Suspect]

REACTIONS (5)
  - GAIT DISTURBANCE [None]
  - VOMITING [None]
  - ANTICONVULSANT DRUG LEVEL DECREASED [None]
  - ALTERED STATE OF CONSCIOUSNESS [None]
  - DRUG DISPENSING ERROR [None]
